FAERS Safety Report 4659240-9 (Version None)
Quarter: 2005Q2

REPORT INFORMATION
  Report Type: 
  Country: None (occurrence: None)
  Receive Date: 20050511
  Receipt Date: 20050217
  Transmission Date: 20051028
  Serious: Yes (Disabling)
  Sender: FDA-Public Use
  Company Number: 2005UW02742

PATIENT
  Age: 70 Year
  Sex: Female

DRUGS (6)
  1. CRESTOR [Suspect]
     Indication: BLOOD CHOLESTEROL INCREASED
     Route: 048
     Dates: start: 20040201, end: 20041101
  2. ATENOLOL [Concomitant]
     Route: 048
  3. COVERSYL [Concomitant]
     Route: 048
  4. ELTROXIN [Concomitant]
  5. NOVAMILOR [Concomitant]
  6. WARFARIN SODIUM [Concomitant]
     Route: 048

REACTIONS (4)
  - BONE PAIN [None]
  - DIFFICULTY IN WALKING [None]
  - MYALGIA [None]
  - PAIN IN EXTREMITY [None]
